FAERS Safety Report 19039949 (Version 3)
Quarter: 2021Q2

REPORT INFORMATION
  Report Type: Spontaneous
  Country: IT (occurrence: IT)
  Receive Date: 20210322
  Receipt Date: 20210422
  Transmission Date: 20210717
  Serious: Yes (Death, Hospitalization)
  Sender: FDA-Public Use
  Company Number: IT-MYLANLABS-2021M1016973

PATIENT
  Age: 89 Year
  Sex: Male

DRUGS (5)
  1. TACHIPIRIN [Suspect]
     Active Substance: ACETAMINOPHEN
     Indication: BACK PAIN
     Dosage: UNK, AM (MORNING)
     Route: 065
  2. TACHIDOL [Suspect]
     Active Substance: ACETAMINOPHEN\CODEINE PHOSPHATE
     Indication: BACK PAIN
     Dosage: UNK, PM (EVENING)
     Route: 065
  3. BRUFEN (IBUPROFEN) [Suspect]
     Active Substance: IBUPROFEN
     Indication: BACK PAIN
     Dosage: 600 MILLIGRAM, BID
     Route: 048
     Dates: start: 20210201, end: 20210204
  4. LASIX [Concomitant]
     Active Substance: FUROSEMIDE
     Indication: DIURETIC THERAPY
     Dosage: UNK
     Route: 065
  5. LUVION                             /00252501/ [Concomitant]
     Active Substance: CANRENOIC ACID
     Indication: DIURETIC THERAPY
     Dosage: UNK
     Route: 065

REACTIONS (13)
  - Sleep disorder [Not Recovered/Not Resolved]
  - Blood sodium decreased [Not Recovered/Not Resolved]
  - Dyspnoea [Unknown]
  - Drug ineffective [Not Recovered/Not Resolved]
  - Femur fracture [Fatal]
  - Somnolence [Unknown]
  - Oxygen saturation decreased [Not Recovered/Not Resolved]
  - Loss of consciousness [Fatal]
  - Balance disorder [Unknown]
  - Fall [Fatal]
  - Dizziness [Unknown]
  - Speech disorder [Not Recovered/Not Resolved]
  - Vomiting [Unknown]
